FAERS Safety Report 26196009 (Version 1)
Quarter: 2025Q4

REPORT INFORMATION
  Report Type: Spontaneous
  Country: EU (occurrence: EU)
  Receive Date: 20251224
  Receipt Date: 20251224
  Transmission Date: 20260117
  Serious: Yes (Other)
  Sender: EXELIXIS
  Company Number: EU-IPSEN Group, Research and Development-2025-31110

PATIENT
  Age: 75 Year
  Sex: Male

DRUGS (3)
  1. CABOMETYX [Suspect]
     Active Substance: CABOZANTINIB S-MALATE
     Indication: Metastasis
     Dosage: 40 MG, QD
     Route: 048
     Dates: start: 20250804, end: 20250904
  2. OPDIVO [Suspect]
     Active Substance: NIVOLUMAB
     Indication: Metastasis
     Dosage: C1D1
     Route: 042
     Dates: start: 20250804, end: 20250804
  3. OPDIVO [Suspect]
     Active Substance: NIVOLUMAB
     Dosage: C1D15
     Route: 042
     Dates: start: 20250820, end: 20250820

REACTIONS (1)
  - Autoimmune hepatitis [Not Recovered/Not Resolved]

NARRATIVE: CASE EVENT DATE: 20250903
